FAERS Safety Report 13091156 (Version 1)
Quarter: 2017Q1

REPORT INFORMATION
  Report Type: Spontaneous
  Country: US (occurrence: US)
  Receive Date: 20170106
  Receipt Date: 20170106
  Transmission Date: 20170428
  Serious: No
  Sender: FDA-Public Use
  Company Number: US-DRREDDYS-USA/USA/16/0077877

PATIENT
  Age: 57 Year
  Sex: Male
  Weight: 68.03 kg

DRUGS (1)
  1. HABITROL [Suspect]
     Active Substance: NICOTINE
     Indication: TOBACCO USER
     Dosage: 21MG AND 14MG
     Route: 062
     Dates: start: 201509

REACTIONS (2)
  - Overdose [Unknown]
  - Treatment noncompliance [Unknown]
